FAERS Safety Report 20579511 (Version 1)
Quarter: 2022Q1

REPORT INFORMATION
  Report Type: Spontaneous
  Country: US (occurrence: US)
  Receive Date: 20220310
  Receipt Date: 20220310
  Transmission Date: 20220423
  Serious: Yes (Other)
  Sender: FDA-Public Use
  Company Number: US-PFIZER INC-202200348607

PATIENT
  Age: 84 Year
  Sex: Female
  Weight: 99.79 kg

DRUGS (2)
  1. XELJANZ [Suspect]
     Active Substance: TOFACITINIB CITRATE
     Indication: Rheumatoid arthritis
     Dosage: UNK
     Dates: start: 202103
  2. XELJANZ [Suspect]
     Active Substance: TOFACITINIB CITRATE
     Dosage: UNK

REACTIONS (16)
  - Periorbital swelling [Unknown]
  - Ocular hyperaemia [Unknown]
  - Eye pruritus [Unknown]
  - Eye pain [Unknown]
  - Eye swelling [Unknown]
  - Swelling of eyelid [Unknown]
  - Drug hypersensitivity [Unknown]
  - Disturbance in attention [Unknown]
  - Dry eye [Unknown]
  - Upper-airway cough syndrome [Unknown]
  - Condition aggravated [Unknown]
  - Sinus pain [Unknown]
  - Sinusitis [Unknown]
  - Vision blurred [Unknown]
  - Lacrimation increased [Unknown]
  - Nasal congestion [Unknown]

NARRATIVE: CASE EVENT DATE: 20210101
